FAERS Safety Report 14443817 (Version 2)
Quarter: 2020Q2

REPORT INFORMATION
  Report Type: Spontaneous
  Country: US (occurrence: US)
  Receive Date: 20180125
  Receipt Date: 20200506
  Transmission Date: 20200713
  Serious: No
  Sender: FDA-Public Use
  Company Number: US-ACTELION-A-NJ2018-166428

PATIENT
  Sex: Female

DRUGS (1)
  1. TRACLEER [Suspect]
     Active Substance: BOSENTAN
     Indication: PULMONARY ARTERIAL HYPERTENSION
     Dosage: UNK
     Route: 048
     Dates: start: 2013, end: 20180109

REACTIONS (2)
  - Unevaluable event [Unknown]
  - Therapy non-responder [Unknown]
